FAERS Safety Report 8603658 (Version 2)
Quarter: 2012Q4

REPORT INFORMATION
  Report Type: 
  Country: US (occurrence: US)
  Receive Date: 20120607
  Receipt Date: 20120918
  Transmission Date: 20130627
  Serious: Yes (Hospitalization, Other)
  Sender: FDA-Public Use
  Company Number: US-ASTRAZENECA-2012SE34905

PATIENT
  Age: 55 Year
  Sex: Male
  Weight: 82.6 kg

DRUGS (4)
  1. SEROQUEL XR [Suspect]
     Indication: BIPOLAR DISORDER
     Route: 048
  2. CITALOPRAM [Concomitant]
     Indication: DEPRESSION
  3. METHADONE [Concomitant]
     Indication: ANALGESIC THERAPY
  4. HYDROCODONE [Concomitant]
     Indication: ANALGESIC THERAPY
     Dosage: 10/135 THREE TIMES A DAY
     Route: 048

REACTIONS (5)
  - Arthropathy [Unknown]
  - Staphylococcal infection [Unknown]
  - Malaise [Unknown]
  - Paranoia [Unknown]
  - Drug dose omission [Unknown]
